FAERS Safety Report 7178737-3 (Version None)
Quarter: 2010Q4

REPORT INFORMATION
  Report Type: 
  Country: None (occurrence: None)
  Receive Date: 20101209
  Receipt Date: 20101129
  Transmission Date: 20110411
  Serious: Yes (Death, Other)
  Sender: FDA-Public Use
  Company Number: 022900

PATIENT
  Sex: Male
  Weight: 81.6475 kg

DRUGS (14)
  1. VIMPAT [Suspect]
     Indication: EPILEPSY
     Dosage: (100 MG BID), (250 MG, 100-0-150MG), (150 MG BID)
     Dates: start: 20100822, end: 20101101
  2. VIMPAT [Suspect]
     Indication: SIMPLE PARTIAL SEIZURES
     Dosage: (100 MG BID), (250 MG, 100-0-150MG), (150 MG BID)
     Dates: start: 20100822, end: 20101101
  3. VIMPAT [Suspect]
     Indication: EPILEPSY
     Dosage: (100 MG BID), (250 MG, 100-0-150MG), (150 MG BID)
     Dates: start: 20101101, end: 20101101
  4. VIMPAT [Suspect]
     Indication: SIMPLE PARTIAL SEIZURES
     Dosage: (100 MG BID), (250 MG, 100-0-150MG), (150 MG BID)
     Dates: start: 20101101, end: 20101101
  5. VIMPAT [Suspect]
     Indication: EPILEPSY
     Dosage: (100 MG BID), (250 MG, 100-0-150MG), (150 MG BID)
     Dates: start: 20101101, end: 20101128
  6. VIMPAT [Suspect]
     Indication: SIMPLE PARTIAL SEIZURES
     Dosage: (100 MG BID), (250 MG, 100-0-150MG), (150 MG BID)
     Dates: start: 20101101, end: 20101128
  7. VIMPAT [Suspect]
  8. DILANTIN [Concomitant]
  9. CLONAZEPAM [Concomitant]
  10. LAMICTAL [Concomitant]
  11. EPIVAL /00228502/ [Concomitant]
  12. LAMOTRIGINE [Concomitant]
  13. FISH OIL [Concomitant]
  14. VITAMIN A [Concomitant]

REACTIONS (9)
  - BRAIN MIDLINE SHIFT [None]
  - CONTUSION [None]
  - FALL [None]
  - HEAD INJURY [None]
  - INTRAVENTRICULAR HAEMORRHAGE [None]
  - LOSS OF CONSCIOUSNESS [None]
  - SKULL FRACTURED BASE [None]
  - SUBARACHNOID HAEMORRHAGE [None]
  - SUBDURAL HAEMATOMA [None]
